FAERS Safety Report 10233585 (Version 1)
Quarter: 2014Q2

REPORT INFORMATION
  Report Type: Spontaneous
  Country: US (occurrence: US)
  Receive Date: 20140612
  Receipt Date: 20140612
  Transmission Date: 20141212
  Serious: Yes (Hospitalization)
  Sender: FDA-Public Use
  Company Number: US-BRISTOL-MYERS SQUIBB COMPANY-20935474

PATIENT
  Age: 46 Year
  Sex: Male

DRUGS (1)
  1. SPRYCEL [Suspect]
     Indication: CHRONIC MYELOID LEUKAEMIA
     Route: 048
     Dates: start: 2011

REACTIONS (4)
  - Pericarditis constrictive [Unknown]
  - Serositis [Unknown]
  - Pleural effusion [Unknown]
  - Antinuclear antibody positive [Unknown]
